FAERS Safety Report 11196282 (Version 2)
Quarter: 2015Q2

REPORT INFORMATION
  Report Type: Spontaneous
  Country: SE (occurrence: SE)
  Receive Date: 20150617
  Receipt Date: 20150619
  Transmission Date: 20150821
  Serious: Yes (Other)
  Sender: FDA-Public Use
  Company Number: SE-SA-2015SA084216

PATIENT
  Age: 59 Year
  Sex: Male

DRUGS (3)
  1. STILNOCT [Suspect]
     Active Substance: ZOLPIDEM TARTRATE
     Route: 065
  2. VENLAFAXINE [Concomitant]
     Active Substance: VENLAFAXINE HYDROCHLORIDE
     Route: 065
  3. LITHIONIT [Concomitant]
     Active Substance: LITHIUM SULFATE
     Route: 065

REACTIONS (2)
  - Ejaculation failure [Recovered/Resolved]
  - Somnambulism [Recovered/Resolved]
